FAERS Safety Report 5729641-6 (Version None)
Quarter: 2008Q2

REPORT INFORMATION
  Report Type: 
  Country: None (occurrence: None)
  Receive Date: 20080501
  Receipt Date: 20080422
  Transmission Date: 20081010
  Serious: Yes (Hospitalization)
  Sender: FDA-Public Use
  Company Number: DSA_31770_2008

PATIENT
  Age: 57 Year
  Sex: Male

DRUGS (7)
  1. ENALAPRIL MALEATE [Suspect]
     Indication: HYPERTENSION
     Dosage: (DF ORAL)
     Route: 048
     Dates: start: 20071206, end: 20071210
  2. INDOMETHACIN [Suspect]
     Indication: GOUT
     Dosage: (100 MG QD ORAL), (125 MG QD ORAL), (100 MG QD ORAL), (75 MG QD ORAL)
     Route: 048
     Dates: start: 20071206, end: 20071206
  3. INDOMETHACIN [Suspect]
     Indication: GOUT
     Dosage: (100 MG QD ORAL), (125 MG QD ORAL), (100 MG QD ORAL), (75 MG QD ORAL)
     Route: 048
     Dates: start: 20071207, end: 20071207
  4. INDOMETHACIN [Suspect]
     Indication: GOUT
     Dosage: (100 MG QD ORAL), (125 MG QD ORAL), (100 MG QD ORAL), (75 MG QD ORAL)
     Route: 048
     Dates: start: 20071208, end: 20071208
  5. INDOMETHACIN [Suspect]
     Indication: GOUT
     Dosage: (100 MG QD ORAL), (125 MG QD ORAL), (100 MG QD ORAL), (75 MG QD ORAL)
     Route: 048
     Dates: start: 20071209, end: 20071210
  6. ACETAMINOPHEN [Concomitant]
  7. POTASSIUM CHLORIDE [Concomitant]

REACTIONS (1)
  - RENAL FAILURE [None]
